FAERS Safety Report 9863773 (Version 1)
Quarter: 2014Q1

REPORT INFORMATION
  Report Type: Spontaneous
  Country: RU (occurrence: RU)
  Receive Date: 20140203
  Receipt Date: 20140203
  Transmission Date: 20141002
  Serious: Yes (Other)
  Sender: FDA-Public Use
  Company Number: RU-ACTAVIS-2014-01087

PATIENT
  Age: 65 Year
  Sex: Female

DRUGS (2)
  1. LOPIREL [Suspect]
     Indication: ANGINA PECTORIS
     Dosage: 75 MG, DAILY
     Route: 048
     Dates: start: 201305
  2. LOPIREL [Suspect]
     Dosage: 75 MG, DAILY
     Route: 048

REACTIONS (1)
  - Haemorrhage subcutaneous [Not Recovered/Not Resolved]
